FAERS Safety Report 9134544 (Version 2)
Quarter: 2013Q3

REPORT INFORMATION
  Report Type: Report from Study
  Country: US (occurrence: US)
  Receive Date: 20130304
  Receipt Date: 20130909
  Transmission Date: 20140515
  Serious: Yes (Hospitalization, Other)
  Sender: FDA-Public Use
  Company Number: US-ELI_LILLY_AND_COMPANY-US201302008637

PATIENT
  Age: 52 Year
  Sex: Female

DRUGS (2)
  1. TERIPARATIDE [Suspect]
     Indication: SENILE OSTEOPOROSIS
     Dosage: 20 UG, QD
     Dates: start: 201201
  2. OXYGEN [Concomitant]
     Dosage: UNK

REACTIONS (10)
  - Pleurisy [Unknown]
  - Pleurisy [Unknown]
  - Pleurisy [Unknown]
  - Chest injury [Unknown]
  - Contusion [Unknown]
  - Inflammation [Unknown]
  - Hypopnoea [Unknown]
  - Respiratory tract congestion [Unknown]
  - Haemoptysis [Unknown]
  - Condition aggravated [Unknown]
